FAERS Safety Report 5358712-1 (Version None)
Quarter: 2007Q2

REPORT INFORMATION
  Report Type: 
  Country: None (occurrence: None)
  Receive Date: 20070601
  Receipt Date: 20070418
  Transmission Date: 20071010
  Serious: No
  Sender: FDA-Public Use
  Company Number: PHEH2007US05912

PATIENT
  Sex: Female

DRUGS (1)
  1. ENABLEX [Suspect]

REACTIONS (5)
  - CONFUSIONAL STATE [None]
  - DRY EYE [None]
  - DRY MOUTH [None]
  - FLUID RETENTION [None]
  - WEIGHT INCREASED [None]
